FAERS Safety Report 13428180 (Version 2)
Quarter: 2017Q2

REPORT INFORMATION
  Report Type: Spontaneous
  Country: IT (occurrence: IT)
  Receive Date: 20170411
  Receipt Date: 20170510
  Transmission Date: 20170830
  Serious: Yes (Hospitalization)
  Sender: FDA-Public Use
  Company Number: IT-PFIZER INC-2017150754

PATIENT
  Age: 39 Year
  Sex: Male

DRUGS (9)
  1. LYRICA [Suspect]
     Active Substance: PREGABALIN
     Indication: DEPRESSION
     Dosage: 20 DF, SINGLE
     Route: 048
     Dates: start: 20170402, end: 20170402
  2. ABILIFY [Concomitant]
     Active Substance: ARIPIPRAZOLE
     Indication: BIPOLAR DISORDER
     Dosage: 10 MG, 1X/DAY
     Route: 048
     Dates: start: 20160101
  3. ABILIFY [Concomitant]
     Active Substance: ARIPIPRAZOLE
     Indication: DEPRESSION
  4. METHADONE HCL [Concomitant]
     Active Substance: METHADONE HYDROCHLORIDE
     Indication: WITHDRAWAL SYNDROME
     Dosage: 30 MG, UNK
     Route: 048
     Dates: start: 20160101
  5. ANAFRANIL [Concomitant]
     Active Substance: CLOMIPRAMINE HYDROCHLORIDE
     Indication: DEPRESSION
     Dosage: 75 MG, 1X/DAY
     Route: 048
     Dates: start: 20160101
  6. MIRTAZAPINE. [Concomitant]
     Active Substance: MIRTAZAPINE
     Indication: DEPRESSION
     Dosage: 30 MG, 1X/DAY
     Route: 048
     Dates: start: 20160101
  7. NOZINAN [Concomitant]
     Active Substance: LEVOMEPROMAZINE
     Indication: DEPRESSION
  8. LYRICA [Suspect]
     Active Substance: PREGABALIN
     Indication: BIPOLAR DISORDER
     Dosage: 75 MG, 3X/DAY
     Route: 048
     Dates: start: 2014
  9. NOZINAN [Concomitant]
     Active Substance: LEVOMEPROMAZINE
     Indication: BIPOLAR DISORDER
     Dosage: 50 MG, DAILY
     Route: 048
     Dates: start: 20160101

REACTIONS (8)
  - Product use in unapproved indication [Unknown]
  - Miosis [Recovered/Resolved]
  - Sopor [Recovered/Resolved]
  - Drug use disorder [Unknown]
  - Nystagmus [Recovered/Resolved]
  - Speech disorder [Recovered/Resolved]
  - Clonus [Recovered/Resolved]
  - Dyskinesia [Recovered/Resolved]

NARRATIVE: CASE EVENT DATE: 2014
